FAERS Safety Report 4355646-6 (Version None)
Quarter: 2004Q2

REPORT INFORMATION
  Report Type: 
  Country: None (occurrence: None)
  Receive Date: 20040505
  Receipt Date: 20040419
  Transmission Date: 20050107
  Serious: Yes (Other)
  Sender: FDA-Public Use
  Company Number: DSA_80394_2003

PATIENT
  Age: 44 Year
  Sex: Female
  Weight: 55.7924 kg

DRUGS (23)
  1. XYREM [Suspect]
     Indication: NARCOLEPSY
     Dosage: 2 G TWICE NIGHTLY PO
     Route: 048
     Dates: start: 20030926, end: 20030926
  2. XYREM [Suspect]
     Indication: NARCOLEPSY
     Dosage: 1 G TWICE NIGHTLY PO
     Route: 048
     Dates: start: 20030726, end: 20030925
  3. CLARINEX /USA/ [Concomitant]
  4. FLONASE [Concomitant]
  5. SINGULAIR [Concomitant]
  6. NEXIUM [Concomitant]
  7. PREDNISONE [Concomitant]
  8. PLAQUENIL [Concomitant]
  9. PROVIGIL [Concomitant]
  10. ULTRACET [Concomitant]
  11. PROGESTERONE [Concomitant]
  12. DONNATAL [Concomitant]
  13. CARAFATE [Concomitant]
  14. ATIVAN [Concomitant]
  15. KLONOPIN [Concomitant]
  16. EXELON [Concomitant]
  17. LIDODERM [Concomitant]
  18. DOXYCYCLINE [Concomitant]
  19. CARDENE [Concomitant]
  20. PROCARDIA [Concomitant]
  21. ALBUTEROL [Concomitant]
  22. CAFERGOT [Concomitant]
  23. IMITREX [Concomitant]

REACTIONS (19)
  - AGITATION [None]
  - ALOPECIA [None]
  - ASTHENIA [None]
  - BLOOD PRESSURE DECREASED [None]
  - CIRCULATORY COLLAPSE [None]
  - DEPRESSED LEVEL OF CONSCIOUSNESS [None]
  - DIARRHOEA HAEMORRHAGIC [None]
  - DYSKINESIA [None]
  - FORMICATION [None]
  - HAIR TEXTURE ABNORMAL [None]
  - HOMICIDAL IDEATION [None]
  - HYPERAESTHESIA [None]
  - MEDICATION ERROR [None]
  - MENTAL STATUS CHANGES [None]
  - MIGRAINE [None]
  - MOOD SWINGS [None]
  - RESTLESS LEGS SYNDROME [None]
  - SELF-INJURIOUS IDEATION [None]
  - VOMITING [None]
